FAERS Safety Report 4410540-7 (Version None)
Quarter: 2004Q3

REPORT INFORMATION
  Report Type: 
  Country: None (occurrence: None)
  Receive Date: 20040726
  Receipt Date: 20040720
  Transmission Date: 20050211
  Serious: Yes (Death)
  Sender: FDA-Public Use
  Company Number: USA-2004-0016090

PATIENT
  Age: 50 Year
  Sex: Male

DRUGS (1)
  1. MORPHINE SULFATE [Suspect]

REACTIONS (4)
  - ACCIDENTAL OVERDOSE [None]
  - BRONCHOPNEUMONIA [None]
  - DRUG TOXICITY [None]
  - PULMONARY EMBOLISM [None]
